FAERS Safety Report 21712772 (Version 1)
Quarter: 2022Q4

REPORT INFORMATION
  Report Type: Spontaneous
  Country: US (occurrence: None)
  Receive Date: 20221208
  Receipt Date: 20221208
  Transmission Date: 20230113
  Serious: Yes (Hospitalization)
  Sender: FDA-Public Use
  Company Number: None

PATIENT
  Age: 27 Month
  Sex: Female

DRUGS (1)
  1. TRACLEER [Suspect]
     Active Substance: BOSENTAN
     Dosage: FREQUENCY : TWICE A DAY;?

REACTIONS (2)
  - Haemorrhage [None]
  - Increased bronchial secretion [None]

NARRATIVE: CASE EVENT DATE: 20221125
